FAERS Safety Report 20103187 (Version 2)
Quarter: 2021Q4

REPORT INFORMATION
  Report Type: Spontaneous
  Country: IT (occurrence: IT)
  Receive Date: 20211123
  Receipt Date: 20211126
  Transmission Date: 20220303
  Serious: Yes (Hospitalization)
  Sender: FDA-Public Use
  Company Number: IT-ALLERGAN-2139727US

PATIENT
  Sex: Female

DRUGS (1)
  1. URSODIOL [Suspect]
     Active Substance: URSODIOL
     Indication: Exposure during pregnancy
     Dosage: UNK, UNKNOWN
     Route: 064

REACTIONS (4)
  - Sepsis [Unknown]
  - Jaundice [Unknown]
  - Anaemia [Unknown]
  - Pregnancy [Unknown]
